FAERS Safety Report 6624242-X (Version None)
Quarter: 2010Q1

REPORT INFORMATION
  Report Type: 
  Country: None (occurrence: None)
  Receive Date: 20100310
  Receipt Date: 20091102
  Transmission Date: 20100710
  Serious: No
  Sender: FDA-Public Use
  Company Number: US-BIOGENIDEC-2009BI035487

PATIENT
  Age: 58 Year
  Sex: Male

DRUGS (3)
  1. AVONEX [Suspect]
     Indication: MULTIPLE SCLEROSIS
     Route: 030
     Dates: end: 20000807
  2. AVONEX [Suspect]
     Route: 030
     Dates: start: 20050101
  3. AVONEX [Suspect]
     Route: 030
     Dates: start: 20091027

REACTIONS (2)
  - INFLUENZA LIKE ILLNESS [None]
  - URINARY INCONTINENCE [None]
